FAERS Safety Report 12521022 (Version 11)
Quarter: 2018Q1

REPORT INFORMATION
  Report Type: Spontaneous
  Country: IT (occurrence: IT)
  Receive Date: 20160701
  Receipt Date: 20180312
  Transmission Date: 20180508
  Serious: Yes (Death, Life-Threatening, Hospitalization, Other)
  Sender: FDA-Public Use
  Company Number: IT-SA-2016SA120782

PATIENT
  Age: 82 Year
  Sex: Female

DRUGS (67)
  1. RIFAMPICIN [Interacting]
     Active Substance: RIFAMPIN
     Indication: STAPHYLOCOCCAL INFECTION
     Route: 065
  2. FENTANYL. [Interacting]
     Active Substance: FENTANYL
     Indication: ISCHAEMIC LIMB PAIN
     Route: 062
     Dates: start: 20150521, end: 20150528
  3. FENTANYL. [Interacting]
     Active Substance: FENTANYL
     Indication: ANGIOPATHY
     Route: 062
     Dates: start: 20150521, end: 20150528
  4. FENTANYL. [Interacting]
     Active Substance: FENTANYL
     Indication: PAIN IN EXTREMITY
     Route: 062
     Dates: start: 20150528, end: 20150602
  5. FENTANYL. [Interacting]
     Active Substance: FENTANYL
     Indication: ANGIOPATHY
     Route: 062
     Dates: start: 20150528, end: 20150602
  6. FENTANYL. [Interacting]
     Active Substance: FENTANYL
     Indication: PROCEDURAL PAIN
     Route: 065
     Dates: start: 20150521
  7. FENTANYL. [Interacting]
     Active Substance: FENTANYL
     Indication: PAIN
     Route: 065
     Dates: start: 20150521
  8. FENTANYL. [Interacting]
     Active Substance: FENTANYL
     Indication: ISCHAEMIC LIMB PAIN
     Route: 065
     Dates: start: 20150521
  9. FENTANYL. [Interacting]
     Active Substance: FENTANYL
     Indication: PROCEDURAL PAIN
     Route: 065
     Dates: start: 20150521
  10. FENTANYL. [Interacting]
     Active Substance: FENTANYL
     Indication: ANGIOPATHY
     Route: 048
     Dates: start: 20150602, end: 20150602
  11. VANCOMYCIN [Interacting]
     Active Substance: VANCOMYCIN
     Indication: STAPHYLOCOCCAL INFECTION
     Route: 065
  12. FENTANYL. [Interacting]
     Active Substance: FENTANYL
     Indication: PAIN
     Route: 065
     Dates: start: 20150521
  13. FENTANYL. [Interacting]
     Active Substance: FENTANYL
     Indication: PROCEDURAL PAIN
     Route: 048
     Dates: start: 20150602, end: 20150602
  14. FENTANYL. [Interacting]
     Active Substance: FENTANYL
     Indication: PAIN IN EXTREMITY
     Route: 048
     Dates: start: 20150602, end: 20150602
  15. VANCOMYCIN [Interacting]
     Active Substance: VANCOMYCIN
     Indication: STAPHYLOCOCCAL SKIN INFECTION
     Route: 065
     Dates: start: 20150501
  16. VANCOMYCIN [Interacting]
     Active Substance: VANCOMYCIN
     Indication: STAPHYLOCOCCAL INFECTION
     Dosage: LOADING DOSE
     Route: 042
     Dates: start: 20150521, end: 20150521
  17. LEVOFLOXACIN. [Interacting]
     Active Substance: LEVOFLOXACIN
     Indication: STAPHYLOCOCCAL SKIN INFECTION
     Dosage: MAINTENANCE DOSE
     Route: 048
     Dates: start: 20150522
  18. FENTANYL. [Interacting]
     Active Substance: FENTANYL
     Indication: ISCHAEMIC LIMB PAIN
     Route: 062
     Dates: start: 20150528, end: 20150606
  19. FENTANYL. [Interacting]
     Active Substance: FENTANYL
     Indication: PAIN
     Route: 048
     Dates: start: 20150101
  20. FENTANYL. [Interacting]
     Active Substance: FENTANYL
     Indication: PAIN IN EXTREMITY
     Dosage: 25 DF
     Route: 062
     Dates: start: 20150521
  21. FENTANYL. [Interacting]
     Active Substance: FENTANYL
     Indication: ANGIOPATHY
     Dosage: 25 DF
     Route: 062
     Dates: start: 20150521
  22. FENTANYL. [Interacting]
     Active Substance: FENTANYL
     Indication: ISCHAEMIC LIMB PAIN
     Route: 062
     Dates: start: 20150528, end: 20150602
  23. FENTANYL. [Interacting]
     Active Substance: FENTANYL
     Indication: ISCHAEMIC LIMB PAIN
     Dosage: 100 MCG 1 TABLET UPGRADEABLE TO 200 MCG.?TRANSMUCOSAL ORAL
     Dates: start: 20150602, end: 20150602
  24. FENTANYL. [Interacting]
     Active Substance: FENTANYL
     Indication: PAIN IN EXTREMITY
     Route: 065
     Dates: start: 20150521
  25. VANCOMYCIN [Interacting]
     Active Substance: VANCOMYCIN
     Indication: STAPHYLOCOCCAL SKIN INFECTION
     Route: 065
  26. LEVOFLOXACIN. [Interacting]
     Active Substance: LEVOFLOXACIN
     Indication: STAPHYLOCOCCAL INFECTION
     Dosage: LOADING DOSE
     Route: 048
     Dates: start: 20150521, end: 20150521
  27. LEVOFLOXACIN. [Interacting]
     Active Substance: LEVOFLOXACIN
     Indication: STAPHYLOCOCCAL INFECTION
     Dosage: MAINTENANCE DOSE
     Route: 048
     Dates: start: 20150522
  28. FENTANYL. [Interacting]
     Active Substance: FENTANYL
     Indication: ISCHAEMIC LIMB PAIN
     Route: 048
     Dates: start: 20150101
  29. FENTANYL. [Interacting]
     Active Substance: FENTANYL
     Indication: PROCEDURAL PAIN
     Route: 048
     Dates: start: 20150101
  30. FENTANYL. [Interacting]
     Active Substance: FENTANYL
     Indication: PROCEDURAL PAIN
     Dosage: 25 DF
     Route: 062
     Dates: start: 20150521
  31. FENTANYL. [Interacting]
     Active Substance: FENTANYL
     Indication: PROCEDURAL PAIN
     Route: 062
     Dates: start: 20150528, end: 20150602
  32. FENTANYL. [Interacting]
     Active Substance: FENTANYL
     Indication: ANGIOPATHY
     Dosage: 100 MCG 1 TABLET UPGRADEABLE TO 200 MCG.?TRANSMUCOSAL ORAL
     Dates: start: 20150602, end: 20150602
  33. FENTANYL. [Interacting]
     Active Substance: FENTANYL
     Indication: ISCHAEMIC LIMB PAIN
     Route: 065
     Dates: start: 20150521
  34. FENTANYL. [Interacting]
     Active Substance: FENTANYL
     Indication: PAIN IN EXTREMITY
     Route: 065
     Dates: start: 20150521
  35. VANCOMYCIN [Interacting]
     Active Substance: VANCOMYCIN
     Indication: STAPHYLOCOCCAL INFECTION
     Route: 065
  36. RIFAMPICIN [Interacting]
     Active Substance: RIFAMPIN
     Indication: STAPHYLOCOCCAL SKIN INFECTION
     Route: 065
  37. FENTANYL. [Interacting]
     Active Substance: FENTANYL
     Indication: ANGIOPATHY
     Route: 062
     Dates: start: 20150528, end: 20150606
  38. FENTANYL. [Interacting]
     Active Substance: FENTANYL
     Indication: PAIN
     Route: 062
     Dates: start: 20150528, end: 20150606
  39. FENTANYL. [Interacting]
     Active Substance: FENTANYL
     Indication: PROCEDURAL PAIN
     Dosage: 100 MCG 1 TABLET UPGRADEABLE TO 200 MCG.?TRANSMUCOSAL ORAL
     Dates: start: 20150602, end: 20150602
  40. VANCOMYCIN [Interacting]
     Active Substance: VANCOMYCIN
     Indication: STAPHYLOCOCCAL SKIN INFECTION
     Dosage: LOADING DOSE
     Route: 042
     Dates: start: 20150521, end: 20150521
  41. LEVOFLOXACIN. [Interacting]
     Active Substance: LEVOFLOXACIN
     Indication: STAPHYLOCOCCAL SKIN INFECTION
     Dosage: LOADING DOSE
     Route: 048
     Dates: start: 20150521, end: 20150521
  42. LEVOFLOXACIN. [Interacting]
     Active Substance: LEVOFLOXACIN
     Indication: STAPHYLOCOCCAL INFECTION
     Route: 048
  43. FENTANYL. [Interacting]
     Active Substance: FENTANYL
     Indication: PAIN IN EXTREMITY
     Route: 048
     Dates: start: 20150101
  44. FENTANYL. [Interacting]
     Active Substance: FENTANYL
     Indication: ANGIOPATHY
     Route: 048
     Dates: start: 20150101
  45. FENTANYL. [Interacting]
     Active Substance: FENTANYL
     Indication: ISCHAEMIC LIMB PAIN
     Dosage: 25 DF
     Route: 062
     Dates: start: 20150521
  46. FENTANYL. [Interacting]
     Active Substance: FENTANYL
     Indication: PAIN IN EXTREMITY
     Dosage: 100 MCG 1 TABLET UPGRADEABLE TO 200 MCG.?TRANSMUCOSAL ORAL
     Dates: start: 20150602, end: 20150602
  47. FENTANYL. [Interacting]
     Active Substance: FENTANYL
     Indication: ANGIOPATHY
     Route: 065
     Dates: start: 20150521
  48. VANCOMYCIN [Interacting]
     Active Substance: VANCOMYCIN
     Indication: STAPHYLOCOCCAL SKIN INFECTION
     Dosage: BY A SWAB APPLIED TO A LEFT FOOT ULCER POSITIVE FOR STAPHYLOCOCCUS AUREUS
     Route: 061
     Dates: start: 20150101
  49. VANCOMYCIN [Interacting]
     Active Substance: VANCOMYCIN
     Indication: STAPHYLOCOCCAL INFECTION
     Dosage: BY A SWAB APPLIED TO A LEFT FOOT ULCER POSITIVE FOR STAPHYLOCOCCUS AUREUS
     Route: 061
     Dates: start: 20150101
  50. VANCOMYCIN [Interacting]
     Active Substance: VANCOMYCIN
     Indication: STAPHYLOCOCCAL INFECTION
     Dosage: MAINTENANCE DOSE; AT THE END OF DIALYSIS
     Route: 042
     Dates: start: 20150522
  51. LEVOFLOXACIN. [Interacting]
     Active Substance: LEVOFLOXACIN
     Indication: STAPHYLOCOCCAL SKIN INFECTION
     Route: 048
  52. RIFAMPICIN [Interacting]
     Active Substance: RIFAMPIN
     Indication: STAPHYLOCOCCAL INFECTION
     Route: 042
     Dates: start: 20150521
  53. FENTANYL. [Interacting]
     Active Substance: FENTANYL
     Indication: PROCEDURAL PAIN
     Route: 062
     Dates: start: 20150521, end: 20150528
  54. FENTANYL. [Interacting]
     Active Substance: FENTANYL
     Indication: PAIN
     Dosage: 100 MCG 1 TABLET UPGRADEABLE TO 200 MCG.?TRANSMUCOSAL ORAL
     Dates: start: 20150602, end: 20150602
  55. FENTANYL. [Interacting]
     Active Substance: FENTANYL
     Indication: PAIN
     Route: 048
     Dates: start: 20150602, end: 20150602
  56. VANCOMYCIN [Interacting]
     Active Substance: VANCOMYCIN
     Indication: STAPHYLOCOCCAL SKIN INFECTION
     Route: 065
  57. RIFAMPICIN [Suspect]
     Active Substance: RIFAMPIN
     Indication: STAPHYLOCOCCAL SKIN INFECTION
     Route: 042
     Dates: start: 20150521
  58. FENTANYL. [Interacting]
     Active Substance: FENTANYL
     Indication: PAIN IN EXTREMITY
     Route: 062
     Dates: start: 20150521, end: 20150528
  59. FENTANYL. [Interacting]
     Active Substance: FENTANYL
     Indication: PAIN
     Route: 062
     Dates: start: 20150521, end: 20150528
  60. FENTANYL. [Interacting]
     Active Substance: FENTANYL
     Indication: PROCEDURAL PAIN
     Route: 062
     Dates: start: 20150528, end: 20150606
  61. FENTANYL. [Interacting]
     Active Substance: FENTANYL
     Indication: PAIN IN EXTREMITY
     Route: 062
     Dates: start: 20150528, end: 20150606
  62. FENTANYL. [Interacting]
     Active Substance: FENTANYL
     Indication: PAIN
     Dosage: 25 DF
     Route: 062
     Dates: start: 20150521
  63. FENTANYL. [Interacting]
     Active Substance: FENTANYL
     Indication: PAIN
     Route: 062
     Dates: start: 20150528, end: 20150602
  64. FENTANYL. [Interacting]
     Active Substance: FENTANYL
     Indication: ANGIOPATHY
     Route: 065
     Dates: start: 20150521
  65. FENTANYL. [Interacting]
     Active Substance: FENTANYL
     Indication: ISCHAEMIC LIMB PAIN
     Route: 048
     Dates: start: 20150602, end: 20150602
  66. VANCOMYCIN [Interacting]
     Active Substance: VANCOMYCIN
     Indication: STAPHYLOCOCCAL INFECTION
     Route: 065
     Dates: start: 20150501
  67. VANCOMYCIN [Interacting]
     Active Substance: VANCOMYCIN
     Indication: STAPHYLOCOCCAL SKIN INFECTION
     Dosage: MAINTENANCE DOSE; AT THE END OF DIALYSIS
     Route: 042
     Dates: start: 20150522

REACTIONS (14)
  - Depressed level of consciousness [Recovered/Resolved]
  - Somnolence [Recovered/Resolved]
  - Overdose [Unknown]
  - Status epilepticus [Recovered/Resolved]
  - Therapy naive [Unknown]
  - Miosis [Recovered/Resolved]
  - Toxicity to various agents [Unknown]
  - Drug interaction [Unknown]
  - Sopor [Recovered/Resolved]
  - Hallucination [Recovered/Resolved]
  - Tremor [Recovered/Resolved]
  - Altered state of consciousness [Recovered/Resolved]
  - Off label use [Unknown]
  - Drug ineffective [Unknown]

NARRATIVE: CASE EVENT DATE: 20150602
